FAERS Safety Report 5495563-1 (Version None)
Quarter: 2007Q4

REPORT INFORMATION
  Report Type: 
  Country: None (occurrence: None)
  Receive Date: 20071025
  Receipt Date: 20071017
  Transmission Date: 20080405
  Serious: Yes (Other)
  Sender: FDA-Public Use
  Company Number: PHBS2007ES17328

PATIENT
  Age: 55 Year

DRUGS (4)
  1. ZOMETA [Suspect]
     Indication: MULTIPLE MYELOMA
     Dosage: 4 MG, UNK
     Route: 042
     Dates: start: 20050715, end: 20070525
  2. THALIDOMIDE [Concomitant]
     Indication: MULTIPLE MYELOMA
     Dosage: 100 MG, QD
     Dates: start: 20070119, end: 20070920
  3. VELCADE [Concomitant]
     Indication: MULTIPLE MYELOMA
     Dosage: 3.5 MG , 2.5 MG IN A CYCLIC WAY
     Route: 042
     Dates: start: 20061211, end: 20070920
  4. FORTECORTIN [Concomitant]
     Indication: MULTIPLE MYELOMA
     Dosage: 40 MG/DAY
     Dates: start: 20050826, end: 20070920

REACTIONS (1)
  - OSTEONECROSIS [None]
